FAERS Safety Report 8879639 (Version 1)
Quarter: 2012Q4

REPORT INFORMATION
  Report Type: 
  Country: US (occurrence: US)
  Receive Date: 20121031
  Receipt Date: 20121031
  Transmission Date: 20130627
  Serious: Yes (Death)
  Sender: FDA-Public Use
  Company Number: US-GLAXOSMITHKLINE-A0999022A

PATIENT
  Age: 83 Year
  Sex: Female

DRUGS (16)
  1. PROMACTA [Suspect]
     Indication: PURPURA
     Dosage: 50MG Per day
     Route: 048
     Dates: start: 20090619, end: 20120930
  2. CALCIUM [Concomitant]
  3. FERGON [Concomitant]
  4. MULTIVITAMIN [Concomitant]
  5. CLARITIN D 12 HOURS [Concomitant]
  6. MIRALAX [Concomitant]
  7. DIOVAN [Concomitant]
  8. FUROSEMIDE [Concomitant]
  9. POTASSIUM CHLORIDE [Concomitant]
  10. BETHANECHOL [Concomitant]
  11. LEXAPRO [Concomitant]
  12. TOPIRAMATE [Concomitant]
  13. CLONAZEPAM [Concomitant]
  14. ESTRACE [Concomitant]
  15. VERAPAMIL [Concomitant]
  16. ADVAIR [Concomitant]

REACTIONS (1)
  - Death [Fatal]
